FAERS Safety Report 16919650 (Version 1)
Quarter: 2019Q4

REPORT INFORMATION
  Report Type: Spontaneous
  Country: US (occurrence: US)
  Receive Date: 20191015
  Receipt Date: 20191015
  Transmission Date: 20200122
  Serious: No
  Sender: FDA-Public Use
  Company Number: US-PERRIGO-19US005718

PATIENT
  Age: 55 Year
  Sex: Male

DRUGS (6)
  1. LIPID MODIFYING AGENTS [Concomitant]
     Active Substance: UNSPECIFIED INGREDIENT
     Indication: BLOOD CHOLESTEROL INCREASED
     Dosage: UNK
     Route: 065
  2. NICOTINE POLACRILEX [Suspect]
     Active Substance: NICOTINE
     Indication: SMOKING CESSATION THERAPY
     Dosage: 4 MG, UNKNOWN
     Route: 002
     Dates: start: 2007
  3. NICOTINE POLACRILEX [Suspect]
     Active Substance: NICOTINE
     Dosage: 1/2 PIECE, UNKNOWN
     Route: 002
     Dates: end: 201902
  4. KLONOPIN [Concomitant]
     Active Substance: CLONAZEPAM
     Indication: VERTIGO
     Dosage: UNK
     Route: 065
  5. NICOTINE POLACRILEX [Suspect]
     Active Substance: NICOTINE
     Dosage: 1/3 PIECE, UNKNOWN, FOR 3 DAYS
     Route: 002
     Dates: start: 201902, end: 201902
  6. NICOTINE POLACRILEX [Suspect]
     Active Substance: NICOTINE
     Dosage: 1/2 PIECE, UNKNOWN
     Route: 002
     Dates: start: 201902

REACTIONS (3)
  - Wrong technique in product usage process [Not Recovered/Not Resolved]
  - Underdose [Unknown]
  - Nicotine dependence [Not Recovered/Not Resolved]
